FAERS Safety Report 7508896-1 (Version None)
Quarter: 2011Q2

REPORT INFORMATION
  Report Type: 
  Country: None (occurrence: None)
  Receive Date: 20110527
  Receipt Date: 20110524
  Transmission Date: 20111010
  Serious: Yes (Death, Hospitalization, Other)
  Sender: FDA-Public Use
  Company Number: PHHY2010MX60219

PATIENT
  Sex: Male

DRUGS (1)
  1. STALEVO 100 [Suspect]
     Indication: PARKINSON'S DISEASE
     Dosage: 3 TABLETS (200/150/37.5 MG) DAILY
     Route: 048
     Dates: start: 20070101, end: 20100526

REACTIONS (9)
  - ARRHYTHMIA [None]
  - APHAGIA [None]
  - PAIN IN EXTREMITY [None]
  - RENAL FAILURE [None]
  - COMA [None]
  - CARDIAC ARREST [None]
  - ASTHENIA [None]
  - GAIT DISTURBANCE [None]
  - INCONTINENCE [None]
